FAERS Safety Report 5772678-1 (Version None)
Quarter: 2008Q2

REPORT INFORMATION
  Report Type: 
  Country: None (occurrence: None)
  Receive Date: 20080613
  Receipt Date: 20071206
  Transmission Date: 20081010
  Serious: No
  Sender: FDA-Public Use
  Company Number: US-BOEHRINGER INGELHEIM GMBH, GERMANY-2007-BP-01895BP

PATIENT
  Sex: Female

DRUGS (15)
  1. MIRAPEX [Suspect]
     Indication: PARKINSON'S DISEASE
     Route: 048
     Dates: start: 20011031, end: 20060401
  2. VALIUM [Concomitant]
     Dates: start: 20020101
  3. TRANSDERM SCOP [Concomitant]
     Dates: start: 20020822
  4. ALLEGRA [Concomitant]
     Dates: start: 20021201
  5. CARBIDOPA AND LEVODOPA [Concomitant]
     Indication: PARKINSON'S DISEASE
     Dates: start: 20020501
  6. PREDNISONE TAB [Concomitant]
     Dates: start: 20030301
  7. CELEBREX [Concomitant]
     Indication: MUSCULOSKELETAL PAIN
     Dates: start: 20010301
  8. SINEMET [Concomitant]
     Indication: PARKINSON'S DISEASE
     Dates: start: 20030101, end: 20060705
  9. DYAZIDE [Concomitant]
     Indication: HYPERTENSION
     Dates: start: 20020101, end: 20040212
  10. ACIPHEX [Concomitant]
     Indication: DYSPEPSIA
     Dates: start: 20020125, end: 20030129
  11. MOTRIN [Concomitant]
     Dates: start: 20010421, end: 20030501
  12. NORVASC [Concomitant]
     Indication: HYPERTENSION
     Dates: start: 20020101, end: 20040212
  13. FOSAMAX [Concomitant]
     Indication: OSTEOPENIA
     Dates: start: 20020101
  14. KENALOG [Concomitant]
     Route: 061
     Dates: start: 20030101
  15. PREVACID [Concomitant]
     Dates: start: 20030401

REACTIONS (6)
  - ANXIETY [None]
  - EMOTIONAL DISTRESS [None]
  - HYPERSEXUALITY [None]
  - INJURY [None]
  - OBSESSIVE-COMPULSIVE DISORDER [None]
  - PATHOLOGICAL GAMBLING [None]
